FAERS Safety Report 24005485 (Version 1)
Quarter: 2024Q2

REPORT INFORMATION
  Report Type: Spontaneous
  Country: US (occurrence: None)
  Receive Date: 20240622
  Receipt Date: 20240622
  Transmission Date: 20240716
  Serious: Yes (Hospitalization)
  Sender: FDA-Public Use
  Company Number: None

PATIENT
  Age: 89 Year
  Sex: Male

DRUGS (1)
  1. LEVETIRACETAM [Suspect]
     Active Substance: LEVETIRACETAM
     Indication: Seizure
     Dates: start: 20221030

REACTIONS (7)
  - Agitation [None]
  - Mental status changes [None]
  - Aggression [None]
  - Blood pressure systolic increased [None]
  - Drug screen positive [None]
  - Metabolic disorder [None]
  - Dementia [None]

NARRATIVE: CASE EVENT DATE: 20240531
